FAERS Safety Report 25552895 (Version 4)
Quarter: 2025Q4

REPORT INFORMATION
  Report Type: Spontaneous
  Country: US (occurrence: US)
  Receive Date: 20250715
  Receipt Date: 20251107
  Transmission Date: 20260118
  Serious: Yes (Other)
  Sender: BLUEPRINT MEDICINES
  Company Number: US-Blueprint Medicines Corporation-2025-AER-01494

PATIENT
  Age: 57 Year
  Sex: Female

DRUGS (4)
  1. AYVAKIT [Suspect]
     Active Substance: AVAPRITINIB
     Indication: Systemic mastocytosis
     Route: 065
  2. AYVAKIT [Suspect]
     Active Substance: AVAPRITINIB
     Indication: Mastocytoma
     Route: 065
  3. AYVAKIT [Suspect]
     Active Substance: AVAPRITINIB
     Route: 065
  4. AYVAKIT [Suspect]
     Active Substance: AVAPRITINIB
     Route: 065
     Dates: start: 20240509

REACTIONS (27)
  - Dehydration [Recovering/Resolving]
  - Weight decreased [Unknown]
  - General physical health deterioration [Unknown]
  - Pain [Recovering/Resolving]
  - Swelling [Unknown]
  - Bone pain [Recovering/Resolving]
  - Arthralgia [Unknown]
  - Asthenia [Unknown]
  - Malaise [Unknown]
  - Pulmonary mass [Unknown]
  - Dysphonia [Unknown]
  - Immunisation reaction [Recovering/Resolving]
  - Nausea [Recovering/Resolving]
  - Vomiting [Recovering/Resolving]
  - Pyrexia [Recovering/Resolving]
  - Oropharyngeal discomfort [Unknown]
  - Gastrooesophageal reflux disease [Unknown]
  - Blood triglycerides increased [Unknown]
  - Tryptase increased [Recovering/Resolving]
  - Pain in extremity [Recovering/Resolving]
  - Weight bearing difficulty [Recovering/Resolving]
  - Lip swelling [Recovering/Resolving]
  - Palmar erythema [Recovering/Resolving]
  - Pruritus [Recovering/Resolving]
  - Headache [Recovering/Resolving]
  - Cough [Recovering/Resolving]
  - Off label use [Unknown]

NARRATIVE: CASE EVENT DATE: 20250101
